FAERS Safety Report 17864099 (Version 2)
Quarter: 2020Q2

REPORT INFORMATION
  Report Type: Spontaneous
  Country: GB (occurrence: GB)
  Receive Date: 20200605
  Receipt Date: 20200612
  Transmission Date: 20200714
  Serious: Yes (Hospitalization, Other)
  Sender: FDA-Public Use
  Company Number: GB-ACCORD-183860

PATIENT
  Age: 36 Year
  Sex: Male

DRUGS (8)
  1. VALPROIC ACID. [Concomitant]
     Active Substance: VALPROIC ACID
     Indication: MOOD SWINGS
     Dosage: TWICE DAILY, 500 MG BD
     Dates: start: 2015, end: 201707
  2. LURASIDONE [Concomitant]
     Active Substance: LURASIDONE
     Indication: SCHIZOPHRENIA
  3. CLOZAPINE. [Suspect]
     Active Substance: CLOZAPINE
     Indication: SCHIZOPHRENIA
     Dates: start: 201707, end: 201709
  4. CLOZAPINE. [Suspect]
     Active Substance: CLOZAPINE
     Indication: SCHIZOPHRENIA
     Dosage: TWICE WEEKLY
     Dates: start: 201709, end: 201711
  5. LITHIUM. [Concomitant]
     Active Substance: LITHIUM
     Indication: SCHIZOPHRENIA
     Dates: start: 200310, end: 201209
  6. OLANZAPINE. [Concomitant]
     Active Substance: OLANZAPINE
     Indication: SCHIZOPHRENIA
     Dates: end: 2015
  7. VORTIOXETINE. [Concomitant]
     Active Substance: VORTIOXETINE
     Indication: SCHIZOPHRENIA
  8. CLOZAPINE. [Suspect]
     Active Substance: CLOZAPINE
     Indication: SCHIZOPHRENIA
     Dates: start: 2015, end: 2015

REACTIONS (7)
  - Pancreatitis acute [Recovered/Resolved]
  - Dysuria [Unknown]
  - Musculoskeletal pain [Unknown]
  - Lethargy [Unknown]
  - Neutropenia [Recovered/Resolved]
  - Malaise [Unknown]
  - Haematuria [Unknown]

NARRATIVE: CASE EVENT DATE: 2015
